FAERS Safety Report 10040471 (Version 2)
Quarter: 2014Q1

REPORT INFORMATION
  Report Type: Spontaneous
  Country: US (occurrence: US)
  Receive Date: 20140327
  Receipt Date: 20140331
  Transmission Date: 20141002
  Serious: Yes (Life-Threatening, Hospitalization, Disabling, Other)
  Sender: FDA-Public Use
  Company Number: US-009507513-1403USA010902

PATIENT
  Sex: Male

DRUGS (4)
  1. PEGINTRON [Suspect]
     Indication: HEPATITIS C
     Dosage: ONE PEGINTRON REDIPEN 150MCG INJECTED ONCE WEEKLY
     Route: 058
     Dates: start: 20140214
  2. REBETOL [Suspect]
     Dosage: UNK
     Route: 048
     Dates: end: 20140320
  3. REBETOL [Suspect]
     Dosage: UNK, DOSE DECREASED
     Route: 048
     Dates: start: 20140320
  4. SOVALDI [Concomitant]
     Dosage: UNK

REACTIONS (3)
  - Respiratory failure [Not Recovered/Not Resolved]
  - Haemoglobin decreased [Not Recovered/Not Resolved]
  - Transfusion [Not Recovered/Not Resolved]
